FAERS Safety Report 8433380-0 (Version None)
Quarter: 2012Q2

REPORT INFORMATION
  Report Type: 
  Country: None (occurrence: None)
  Receive Date: 20120613
  Receipt Date: 20120607
  Transmission Date: 20120825
  Serious: Yes (Hospitalization)
  Sender: FDA-Public Use
  Company Number: FR-MERCK-1206FRA00024

PATIENT
  Age: 40 Year
  Sex: Male

DRUGS (2)
  1. BENZYL BENZOATE [Suspect]
     Indication: ACARODERMATITIS
     Route: 061
     Dates: start: 20120101
  2. STROMECTOL [Suspect]
     Indication: ACARODERMATITIS
     Route: 048
     Dates: start: 20120101, end: 20120101

REACTIONS (3)
  - HYPERHIDROSIS [None]
  - RASH [None]
  - DYSPNOEA [None]
